FAERS Safety Report 17827008 (Version 1)
Quarter: 2020Q2

REPORT INFORMATION
  Report Type: Spontaneous
  Country: AU (occurrence: AU)
  Receive Date: 20200527
  Receipt Date: 20200527
  Transmission Date: 20200714
  Serious: Yes (Hospitalization, Other)
  Sender: FDA-Public Use
  Company Number: AU-TEVA-2020-AU-1240981

PATIENT
  Age: 70 Year
  Sex: Female

DRUGS (10)
  1. DENCORUB [Concomitant]
     Dosage: APPLIED WHEN NECESSARY
  2. PANADOL [Concomitant]
     Active Substance: ACETAMINOPHEN
     Indication: ARTHRALGIA
     Dosage: 1000MG FOUR TIMES DAILY WHEN NECESSARY
  3. AMOXICILLIN. [Concomitant]
     Active Substance: AMOXICILLIN
     Indication: SPLENECTOMY
     Dosage: 250 MILLIGRAM DAILY; 250MG IN THE ORNING FOR A DURATION OF 3 YEARS AND AT A DOSAGE OF 1500MG STAT AT
  4. OMEPRAZOLE. [Concomitant]
     Active Substance: OMEPRAZOLE
     Dosage: 20 MILLIGRAM DAILY; 20MG IN THE MORNING
  5. SERTRALINE [Concomitant]
     Active Substance: SERTRALINE HYDROCHLORIDE
     Dosage: 100 MILLIGRAM DAILY;
  6. HYDROZOLE [Concomitant]
     Active Substance: CLOTRIMAZOLE\HYDROCORTISONE
  7. OLANZAPINE. [Suspect]
     Active Substance: OLANZAPINE
     Indication: SCHIZOPHRENIA
     Dosage: 25 MILLIGRAM DAILY; 25MG AT NIGHT
  8. COLECALCIFEROL [Concomitant]
     Active Substance: CHOLECALCIFEROL
     Dosage: 1000 IU (INTERNATIONAL UNIT) DAILY; IN THE MORNING
  9. VITAMIN B12 [Concomitant]
     Active Substance: CYANOCOBALAMIN
     Dosage: 100 MICROGRAM DAILY; 100MCG IN THE MORNING
  10. LOPERAMIDE [Concomitant]
     Active Substance: LOPERAMIDE
     Indication: ABNORMAL FAECES
     Dosage: 2MG WHEN NECESSARY

REACTIONS (18)
  - Irritability [Unknown]
  - Dehydration [Unknown]
  - Delirium [Unknown]
  - Urinary tract infection [Unknown]
  - Anal incontinence [Unknown]
  - Thrombocytopenia [Unknown]
  - Confusional state [Unknown]
  - Sepsis [Unknown]
  - Social avoidant behaviour [Unknown]
  - Balance disorder [Unknown]
  - Urinary incontinence [Unknown]
  - Pain [Unknown]
  - Neutrophilia [Unknown]
  - Escherichia infection [Unknown]
  - Aggression [Unknown]
  - Drug effect less than expected [Unknown]
  - Rash [Unknown]
  - Hyperparathyroidism [Unknown]
